FAERS Safety Report 8510025-2 (Version None)
Quarter: 2012Q3

REPORT INFORMATION
  Report Type: 
  Country: None (occurrence: None)
  Receive Date: 20120713
  Receipt Date: 20120703
  Transmission Date: 20120928
  Serious: Yes (Other)
  Sender: FDA-Public Use
  Company Number: US-PERRIGO-12US005779

PATIENT
  Age: 8 Year
  Sex: Male

DRUGS (2)
  1. CEPHALEXIN [Concomitant]
     Indication: ARTHROPOD BITE
     Dosage: UNK
     Route: 048
  2. DIPHENHYDRAMINE HCL [Suspect]
     Indication: ARTHROPOD BITE
     Dosage: 2 DOSING CUPFULS (40 ML), SINGLE
     Route: 048
     Dates: start: 20120703, end: 20120703

REACTIONS (4)
  - OVERDOSE [None]
  - HYPOAESTHESIA [None]
  - DIZZINESS [None]
  - VISUAL IMPAIRMENT [None]
